FAERS Safety Report 15862686 (Version 2)
Quarter: 2019Q2

REPORT INFORMATION
  Report Type: Spontaneous
  Country: US (occurrence: US)
  Receive Date: 20190124
  Receipt Date: 20190423
  Transmission Date: 20190711
  Serious: No
  Sender: FDA-Public Use
  Company Number: US-MYLANLABS-2019M1002456

PATIENT
  Sex: Female
  Weight: 70 kg

DRUGS (2)
  1. ESTRADIOL VAGINAL CREAM USP [Suspect]
     Active Substance: ESTRADIOL
     Indication: HORMONE REPLACEMENT THERAPY
     Dosage: 1 GRAM, QD (FOR TWO WEEKS)
     Route: 067
     Dates: start: 20181127
  2. ESTRADIOL VAGINAL CREAM USP [Suspect]
     Active Substance: ESTRADIOL
     Dosage: 2 TIMES A WEEK TOTAL OF 42 APPLICATIONS

REACTIONS (3)
  - Device issue [Unknown]
  - Accidental overdose [Not Recovered/Not Resolved]
  - Incorrect dose administered by device [Unknown]
